FAERS Safety Report 7171571-X (Version None)
Quarter: 2010Q4

REPORT INFORMATION
  Report Type: 
  Country: None (occurrence: None)
  Receive Date: 20101217
  Receipt Date: 20101208
  Transmission Date: 20110411
  Serious: No
  Sender: FDA-Public Use
  Company Number: US-BIOGENIDEC-2010BI043650

PATIENT
  Age: 40 Year
  Sex: Female

DRUGS (1)
  1. AVONEX [Suspect]
     Indication: MULTIPLE SCLEROSIS
     Route: 030
     Dates: start: 20101112

REACTIONS (5)
  - GINGIVAL BLEEDING [None]
  - GINGIVAL PAIN [None]
  - OEDEMA MOUTH [None]
  - PAIN IN JAW [None]
  - STOMATITIS [None]
